FAERS Safety Report 4343940-4 (Version None)
Quarter: 2004Q2

REPORT INFORMATION
  Report Type: 
  Country: None (occurrence: None)
  Receive Date: 20040419
  Receipt Date: 20040409
  Transmission Date: 20050107
  Serious: Yes (Other)
  Sender: FDA-Public Use
  Company Number: 200410199BYL

PATIENT
  Age: 72 Year
  Sex: Female

DRUGS (5)
  1. ASPIRIN [Suspect]
     Dosage: 200 MG, TOTAL DAILY, ORAL
     Route: 048
  2. KETAS (IBUDILAST) [Suspect]
     Dosage: ORAL
     Route: 048
  3. PRAVASTATIN [Suspect]
     Dosage: ORAL
     Route: 048
  4. METFORMIN HYDROCHLORIDE [Suspect]
     Dosage: ORAL
     Route: 048
  5. HERBESSER ^TANABE^ [Concomitant]

REACTIONS (1)
  - EOSINOPHILIC PNEUMONIA [None]
